FAERS Safety Report 6722824-8 (Version None)
Quarter: 2010Q2

REPORT INFORMATION
  Report Type: 
  Country: None (occurrence: None)
  Receive Date: 20100512
  Receipt Date: 20100512
  Transmission Date: 20101027
  Serious: Yes (Other)
  Sender: FDA-Public Use
  Company Number: None

PATIENT
  Age: 40 Year
  Sex: Female

DRUGS (1)
  1. AMOXICILLIN AND CLAVULANATE POTASSIUM [Suspect]
     Indication: SINUSITIS
     Dosage: 875/125 MG TWICE DAILY PO
     Route: 048
     Dates: start: 20100414, end: 20100422

REACTIONS (4)
  - DYSGEUSIA [None]
  - PARAESTHESIA [None]
  - PARAESTHESIA ORAL [None]
  - SINUS DISORDER [None]
